FAERS Safety Report 17133494 (Version 2)
Quarter: 2021Q4

REPORT INFORMATION
  Report Type: Spontaneous
  Country: US (occurrence: US)
  Receive Date: 20191210
  Receipt Date: 20211129
  Transmission Date: 20220303
  Serious: No
  Sender: FDA-Public Use
  Company Number: US-UCBSA-2016034182

PATIENT
  Age: 73 Year
  Sex: Male

DRUGS (7)
  1. VIMPAT [Suspect]
     Active Substance: LACOSAMIDE
     Indication: Partial seizures
     Dosage: 100 MG, 2X/DAY (BID)
     Dates: start: 20160929
  2. VIMPAT [Suspect]
     Active Substance: LACOSAMIDE
     Dosage: 100 MG, ONCE DAILY (QD)
     Dates: start: 201801
  3. VIMPAT [Suspect]
     Active Substance: LACOSAMIDE
     Dosage: 150 MG, 2X/DAY (BID)
     Route: 048
     Dates: end: 2018
  4. KEPPRA [Suspect]
     Active Substance: LEVETIRACETAM
     Indication: Epilepsy
     Dosage: 500 MG, 3X/DAY (TID)
  5. KEPPRA [Suspect]
     Active Substance: LEVETIRACETAM
     Dosage: 500 MG
  6. LEVETIRACETAM [Concomitant]
     Active Substance: LEVETIRACETAM
     Indication: Product used for unknown indication
     Dosage: UNK
  7. ELIQUIS [Concomitant]
     Active Substance: APIXABAN
     Indication: Product used for unknown indication

REACTIONS (3)
  - Amnesia [Unknown]
  - Seizure [Recovered/Resolved]
  - Intentional product misuse [Unknown]

NARRATIVE: CASE EVENT DATE: 20160712
